FAERS Safety Report 6904594-3 (Version None)
Quarter: 2010Q3

REPORT INFORMATION
  Report Type: 
  Country: None (occurrence: None)
  Receive Date: 20100804
  Receipt Date: 20090616
  Transmission Date: 20110219
  Serious: Yes (Other)
  Sender: FDA-Public Use
  Company Number: US-PFIZER INC-2009183254

PATIENT
  Sex: Female
  Weight: 125.62 kg

DRUGS (5)
  1. LYRICA [Suspect]
     Indication: FIBROMYALGIA
  2. NEURONTIN [Suspect]
     Indication: FIBROMYALGIA
     Dosage: UNK
  3. TRAZODONE HYDROCHLORIDE [Concomitant]
     Dosage: UNK
  4. PREVACID [Concomitant]
     Indication: GASTROOESOPHAGEAL REFLUX DISEASE
     Dosage: UNK
  5. FLEXERIL [Concomitant]
     Dosage: UNK

REACTIONS (6)
  - BACK PAIN [None]
  - DEPRESSION [None]
  - MYALGIA [None]
  - PAIN [None]
  - WEIGHT INCREASED [None]
  - WEIGHT LOSS POOR [None]
